FAERS Safety Report 9232973 (Version 1)
Quarter: 2013Q2

REPORT INFORMATION
  Report Type: Spontaneous
  Country: US (occurrence: None)
  Receive Date: 20130415
  Receipt Date: 20130415
  Transmission Date: 20140414
  Serious: Yes (Disabling, Other)
  Sender: FDA-Public Use
  Company Number: None

PATIENT
  Age: 33 Month
  Sex: Male

DRUGS (1)
  1. CHILDRENS ZYRTEC [Suspect]
     Indication: MULTIPLE ALLERGIES
     Dosage: 1 TSP OR 5 MG
     Route: 048
     Dates: start: 20130326, end: 20130407

REACTIONS (5)
  - Abnormal behaviour [None]
  - Paranoia [None]
  - Anxiety [None]
  - Depression [None]
  - Aggression [None]
